FAERS Safety Report 21266012 (Version 3)
Quarter: 2022Q3

REPORT INFORMATION
  Report Type: Other
  Country: DE (occurrence: DE)
  Receive Date: 20220829
  Receipt Date: 20220922
  Transmission Date: 20221026
  Serious: Yes (Hospitalization)
  Sender: FDA-Public Use
  Company Number: DE-ROCHE-3169578

PATIENT
  Age: 74 Year
  Sex: Female

DRUGS (12)
  1. RITUXIMAB [Suspect]
     Active Substance: RITUXIMAB
     Indication: Systemic scleroderma
     Route: 041
  2. MYCOPHENOLATE MOFETIL [Suspect]
     Active Substance: MYCOPHENOLATE MOFETIL
     Indication: Systemic scleroderma
     Route: 065
     Dates: end: 2017
  3. PFIZER-BIONTECH COVID-19 VACCINE [Suspect]
     Active Substance: TOZINAMERAN
     Indication: COVID-19 prophylaxis
     Dosage: ADMINISTERED IN APR AND JUN/2021 WITH A 5-WEEK INTERVAL
     Route: 065
  4. AMLODIPINE [Concomitant]
     Active Substance: AMLODIPINE BESYLATE
     Dosage: PER DAY
  5. VALSARTAN AND HYDROCHLOROTHIAZIDE [Concomitant]
     Active Substance: HYDROCHLOROTHIAZIDE\VALSARTAN
     Dosage: 160/12, 5 MG/PER DAY
  6. CHOLECALCIFEROL [Concomitant]
     Active Substance: CHOLECALCIFEROL
     Dosage: 20,000 IU/TWICE A WEEK
  7. SILDENAFIL [Concomitant]
     Active Substance: SILDENAFIL
  8. LEVOTHYROXINE SODIUM [Concomitant]
     Active Substance: LEVOTHYROXINE SODIUM
     Dosage: 100 MICROGRAMS/PER DAY
  9. CHADOX1-S VACCINE [Concomitant]
     Dates: start: 202107
  10. ALBUTEROL SULFATE\IPRATROPIUM BROMIDE [Concomitant]
     Active Substance: ALBUTEROL SULFATE\IPRATROPIUM BROMIDE
  11. BARICITINIB [Concomitant]
     Active Substance: BARICITINIB
     Dosage: 4 MG/DAY WAS ADDED AND CONTINUED FOR 7 DAYS
  12. DEXAMETHASONE [Concomitant]
     Active Substance: DEXAMETHASONE
     Dosage: DEXAMETHASONE 6 MG/DAY AND CONTINUED FOR 7 DAYS

REACTIONS (5)
  - COVID-19 pneumonia [Recovered/Resolved]
  - Vaccination failure [Unknown]
  - Drug interaction [Unknown]
  - Arthritis [Unknown]
  - Off label use [Unknown]
